FAERS Safety Report 6052570-8 (Version None)
Quarter: 2009Q1

REPORT INFORMATION
  Report Type: 
  Country: None (occurrence: None)
  Receive Date: 20090127
  Receipt Date: 20081112
  Transmission Date: 20090719
  Serious: Yes (Hospitalization, Other)
  Sender: FDA-Public Use
  Company Number: US-ELI_LILLY_AND_COMPANY-US200811002689

PATIENT
  Sex: Male
  Weight: 173.24 kg

DRUGS (1)
  1. ZYPREXA [Suspect]
     Indication: DEPRESSION
     Dosage: 1 D/F, DAILY (1/D)

REACTIONS (7)
  - CARDIAC FAILURE CONGESTIVE [None]
  - CELLULITIS [None]
  - DIABETES MELLITUS [None]
  - FLUID RETENTION [None]
  - HEPATIC FAILURE [None]
  - PANCREATIC DISORDER [None]
  - TOOTH LOSS [None]
